FAERS Safety Report 8287016-2 (Version None)
Quarter: 2012Q2

REPORT INFORMATION
  Report Type: 
  Country: None (occurrence: None)
  Receive Date: 20120416
  Receipt Date: 20111209
  Transmission Date: 20120825
  Serious: Yes (Hospitalization)
  Sender: FDA-Public Use
  Company Number: DE-ROCHE-1021276

PATIENT
  Age: 52 Year
  Sex: Male
  Weight: 59.5 kg

DRUGS (6)
  1. VEMURAFENIB [Suspect]
     Indication: METASTATIC MALIGNANT MELANOMA
     Route: 048
     Dates: start: 20111121, end: 20111208
  2. KEPPRA [Concomitant]
     Dates: start: 20111028
  3. VEMURAFENIB [Suspect]
     Route: 048
     Dates: start: 20111214, end: 20120102
  4. DEXAMETHASONE [Concomitant]
     Dates: start: 20110801
  5. TORSEMIDE [Concomitant]
     Dates: start: 20110101
  6. PANTOPRAZOLE [Concomitant]
     Dates: start: 20100101

REACTIONS (2)
  - CELLULITIS [None]
  - ERYSIPELAS [None]
